FAERS Safety Report 5626773-8 (Version None)
Quarter: 2008Q1

REPORT INFORMATION
  Report Type: 
  Country: None (occurrence: None)
  Receive Date: 20080214
  Receipt Date: 20080204
  Transmission Date: 20080703
  Serious: Yes (Death, Hospitalization)
  Sender: FDA-Public Use
  Company Number: JP-PFIZER INC-2008011490

PATIENT
  Age: 75 Year
  Sex: Female
  Weight: 60 kg

DRUGS (3)
  1. AMLODIPINE BESYLATE [Suspect]
     Indication: HYPERTENSION
     Route: 048
     Dates: start: 20060328, end: 20070702
  2. OLMETEC [Suspect]
     Indication: HYPERTENSION
     Route: 048
     Dates: start: 20060328, end: 20070702
  3. ASPIRIN [Suspect]
     Indication: CEREBROVASCULAR ACCIDENT
     Route: 048
     Dates: start: 19980101, end: 20070702

REACTIONS (2)
  - AUTOIMMUNE HEPATITIS [None]
  - HEPATITIS ACUTE [None]
